FAERS Safety Report 6593693-4 (Version None)
Quarter: 2010Q1

REPORT INFORMATION
  Report Type: 
  Country: None (occurrence: None)
  Receive Date: 20100222
  Receipt Date: 20091125
  Transmission Date: 20100710
  Serious: Yes (Other)
  Sender: FDA-Public Use
  Company Number: US-BRISTOL-MYERS SQUIBB COMPANY-14863914

PATIENT
  Age: 66 Year
  Sex: Female

DRUGS (15)
  1. ORENCIA [Suspect]
     Indication: RHEUMATOID ARTHRITIS
     Dosage: INFUSIONS:5, BATCH NUM/EXP DATE: 9051791/MAR-2012,9051791/MAR-2012,9E52032/MAR-2012,9G49491/MAR-2012
     Route: 042
     Dates: start: 20090803
  2. IBUPROFEN [Concomitant]
     Indication: RHEUMATOID ARTHRITIS
  3. LISINOPRIL [Concomitant]
  4. METHOTREXATE [Concomitant]
     Indication: RHEUMATOID ARTHRITIS
     Route: 048
  5. ARAVA [Concomitant]
     Indication: RHEUMATOID ARTHRITIS
     Route: 048
  6. COREG [Concomitant]
  7. LEVOXYL [Concomitant]
  8. NORVASC [Concomitant]
  9. CRESTOR [Concomitant]
  10. ASPIRIN [Concomitant]
  11. CALCIUM [Concomitant]
     Dates: start: 20071022
  12. VITAMIN D [Concomitant]
     Dates: start: 20071022
  13. PRAVACHOL [Concomitant]
     Dates: start: 20071022
  14. FISH OIL [Concomitant]
     Dates: start: 20081005
  15. FOLIC ACID [Concomitant]

REACTIONS (1)
  - LUNG NEOPLASM MALIGNANT [None]
